FAERS Safety Report 18591219 (Version 1)
Quarter: 2020Q4

REPORT INFORMATION
  Report Type: Spontaneous
  Country: CN (occurrence: CN)
  Receive Date: 20201208
  Receipt Date: 20201208
  Transmission Date: 20210114
  Serious: Yes (Hospitalization)
  Sender: FDA-Public Use
  Company Number: CN-PFIZER INC-2020479801

PATIENT
  Age: 70 Year
  Sex: Female
  Weight: 64 kg

DRUGS (4)
  1. LEVOTHYROXINE SODIUM. [Suspect]
     Active Substance: LEVOTHYROXINE SODIUM
     Indication: THYROID FUNCTION TEST ABNORMAL
     Dosage: 25 UG, 1X/DAY
     Route: 048
     Dates: start: 20201030, end: 20201120
  2. LINEZOLID. [Suspect]
     Active Substance: LINEZOLID
     Indication: INFECTION
     Dosage: 600 MG, 2X/DAY
     Route: 041
     Dates: start: 20201113, end: 20201120
  3. AMLODIPINE BESYLATE. [Suspect]
     Active Substance: AMLODIPINE BESYLATE
     Indication: HYPERTENSION
     Dosage: 5 MG, 1X/DAY
     Route: 048
     Dates: start: 20201104, end: 20201120
  4. PIPERAZINE FERULATE [Suspect]
     Active Substance: PIPERAZINE BISFERULATE
     Indication: VASCULAR MALFORMATION
     Dosage: 200 MG, 3X/DAY
     Route: 048
     Dates: start: 20201104, end: 20201120

REACTIONS (8)
  - Hypersensitivity [Unknown]
  - Dermatitis allergic [Unknown]
  - Rash [Unknown]
  - Renal impairment [Unknown]
  - Drug ineffective [Unknown]
  - Platelet count decreased [Unknown]
  - Anaemia [Unknown]
  - Pruritus [Unknown]

NARRATIVE: CASE EVENT DATE: 20201116
